FAERS Safety Report 25169159 (Version 1)
Quarter: 2025Q2

REPORT INFORMATION
  Report Type: Spontaneous
  Country: US (occurrence: US)
  Receive Date: 20250407
  Receipt Date: 20250407
  Transmission Date: 20250716
  Serious: Yes (Other)
  Sender: BRISTOL MYERS SQUIBB
  Company Number: US-BRISTOL-MYERS SQUIBB COMPANY-2025-046972

PATIENT
  Age: 43 Year
  Sex: Female

DRUGS (1)
  1. ZEPOSIA [Suspect]
     Active Substance: OZANIMOD HYDROCHLORIDE
     Indication: Multiple sclerosis
     Route: 048

REACTIONS (9)
  - Crohn^s disease [Unknown]
  - Gastrointestinal disorder [Unknown]
  - Head injury [Unknown]
  - Blood potassium decreased [Unknown]
  - Condition aggravated [Unknown]
  - Sedation [Unknown]
  - Respiratory rate decreased [Unknown]
  - Neck pain [Unknown]
  - Arthralgia [Unknown]
